FAERS Safety Report 13997384 (Version 5)
Quarter: 2018Q3

REPORT INFORMATION
  Report Type: Spontaneous
  Country: FR (occurrence: FR)
  Receive Date: 20170921
  Receipt Date: 20180905
  Transmission Date: 20181010
  Serious: Yes (Hospitalization, Other)
  Sender: FDA-Public Use
  Company Number: PHHY2017FR134752

PATIENT
  Age: 65 Year
  Sex: Male
  Weight: 70 kg

DRUGS (18)
  1. CYTARABINE. [Suspect]
     Active Substance: CYTARABINE
     Dosage: UNK (2ND CYCLE)
     Route: 042
  2. DEXAMETHASONE. [Suspect]
     Active Substance: DEXAMETHASONE
     Dosage: 40 MG, QD
     Route: 042
     Dates: start: 20170817, end: 20170820
  3. PERFALGAN [Suspect]
     Active Substance: ACETAMINOPHEN
     Indication: PRODUCT USED FOR UNKNOWN INDICATION
     Dosage: 1000 MG, (1 DF IN 1 CYCLE (FOR 15 MINUTES))
     Route: 042
     Dates: end: 20170816
  4. DEXAMETHASONE. [Suspect]
     Active Substance: DEXAMETHASONE
     Indication: NON-HODGKIN^S LYMPHOMA
     Dosage: UNK UNK, ONCE/SINGLE
     Route: 041
     Dates: start: 20170613, end: 20170613
  5. OXALIPLATIN. [Suspect]
     Active Substance: OXALIPLATIN
     Dosage: UNK (2ND CYCLE)
     Route: 042
  6. DEXAMETHASONE. [Suspect]
     Active Substance: DEXAMETHASONE
     Dosage: 4 MG, (1 DF IN 1 CYCLE (FOR 1 DAY))
     Route: 041
     Dates: start: 20170816, end: 20170816
  7. OXALIPLATIN. [Suspect]
     Active Substance: OXALIPLATIN
     Dosage: 180 MG, ONCE/SINGLE  (1 DF IN 1 CYCLE (FOR 2 HOURS))
     Route: 041
     Dates: start: 20170816, end: 20170816
  8. DEXAMETHASONE. [Suspect]
     Active Substance: DEXAMETHASONE
     Dosage: UNK (2ND CYCLE)
     Route: 042
  9. MABTHERA [Suspect]
     Active Substance: RITUXIMAB
     Indication: NON-HODGKIN^S LYMPHOMA
     Dosage: UNK UNK, ONCE/SINGLE
     Route: 042
     Dates: start: 20170613, end: 20170613
  10. MABTHERA [Suspect]
     Active Substance: RITUXIMAB
     Dosage: UNK (2ND CYCLE)
     Route: 042
  11. ZOPHREN [Concomitant]
     Active Substance: ONDANSETRON
     Indication: VOMITING
     Dosage: 8 MG, QD
     Route: 041
     Dates: start: 20170816, end: 20170818
  12. CYTARABINE. [Suspect]
     Active Substance: CYTARABINE
     Indication: NON-HODGKIN^S LYMPHOMA
     Dosage: UNK UNK, ONCE/SINGLE
     Route: 042
     Dates: start: 20170613, end: 20170613
  13. DIAMICRON [Concomitant]
     Active Substance: GLICLAZIDE
     Indication: DIABETES MELLITUS
     Dosage: 180 MG, QD
     Route: 048
  14. POLARAMINE [Concomitant]
     Active Substance: DEXCHLORPHENIRAMINE MALEATE
     Indication: NON-HODGKIN^S LYMPHOMA
     Route: 040
     Dates: start: 20170816, end: 20170816
  15. CYTARABINE. [Suspect]
     Active Substance: CYTARABINE
     Dosage: 7200 MG, UNK (3600 MG TWICE IN 1 CYCLE (FOR 3 HOURS))
     Route: 041
     Dates: start: 20170816, end: 20170817
  16. MABTHERA [Suspect]
     Active Substance: RITUXIMAB
     Dosage: 680 MG, ONCE/SINGLE (1 DF IN  CYCLE (FOR 1 HOUR AND A HALF))
     Route: 041
     Dates: start: 20170816, end: 20170816
  17. LANTUS [Concomitant]
     Active Substance: INSULIN GLARGINE
     Indication: TYPE 2 DIABETES MELLITUS
     Dosage: 12 IU, QD (IN THE EVENING)
     Route: 058
  18. OXALIPLATIN. [Suspect]
     Active Substance: OXALIPLATIN
     Indication: NON-HODGKIN^S LYMPHOMA
     Dosage: ONCE/SINGLE
     Route: 042
     Dates: start: 20170613, end: 20170613

REACTIONS (4)
  - Infection [Recovered/Resolved]
  - Hyperthermia [Recovered/Resolved]
  - Blood culture positive [Recovered/Resolved]
  - Chills [Recovered/Resolved]

NARRATIVE: CASE EVENT DATE: 201707
